FAERS Safety Report 24266483 (Version 1)
Quarter: 2024Q3

REPORT INFORMATION
  Report Type: Spontaneous
  Country: SG (occurrence: SG)
  Receive Date: 20240830
  Receipt Date: 20240830
  Transmission Date: 20241016
  Serious: Yes (Hospitalization)
  Sender: ROCHE
  Company Number: SG-ROCHE-10000066140

PATIENT
  Age: 30 Year
  Sex: Male

DRUGS (8)
  1. RITUXIMAB [Suspect]
     Active Substance: RITUXIMAB
     Indication: Dermatomyositis
     Dosage: TWO  DOSES
     Route: 042
  2. METHYLPREDNISOLONE [Concomitant]
     Active Substance: METHYLPREDNISOLONE
     Dosage: FOR 3 DAYS
  3. TOFACITINIB [Concomitant]
     Active Substance: TOFACITINIB
  4. PREDNISOLONE [Concomitant]
     Active Substance: PREDNISOLONE
  5. BARICITINIB [Concomitant]
     Active Substance: BARICITINIB
  6. TACROLIMUS [Concomitant]
     Active Substance: TACROLIMUS
  7. DARATUMUMAB [Concomitant]
     Active Substance: DARATUMUMAB
     Route: 042
  8. NINTEDANIB [Concomitant]
     Active Substance: NINTEDANIB

REACTIONS (1)
  - COVID-19 [Unknown]

NARRATIVE: CASE EVENT DATE: 20230501
